FAERS Safety Report 5964590-X (Version None)
Quarter: 2008Q4

REPORT INFORMATION
  Report Type: 
  Country: None (occurrence: None)
  Receive Date: 20081125
  Receipt Date: 20081119
  Transmission Date: 20090506
  Serious: Yes (Death)
  Sender: FDA-Public Use
  Company Number: US-JNJFOC-20040502832

PATIENT
  Sex: Female
  Weight: 55 kg

DRUGS (19)
  1. DURAGESIC-100 [Suspect]
     Route: 062
  2. DURAGESIC-100 [Suspect]
     Route: 062
  3. DURAGESIC-100 [Suspect]
     Route: 062
  4. DURAGESIC-100 [Suspect]
     Route: 062
  5. DURAGESIC-100 [Suspect]
     Route: 062
  6. DURAGESIC-100 [Suspect]
     Indication: PAIN
     Route: 062
  7. NEURONTIN [Suspect]
     Indication: PAIN
  8. EFFEXOR [Suspect]
     Indication: DEPRESSION
  9. ATENOLOL [Concomitant]
  10. LORAZEPAM [Concomitant]
  11. FLEXERIL [Concomitant]
  12. BEXTRA [Concomitant]
  13. TEMAZEPAM [Concomitant]
  14. TOPAMAX [Concomitant]
  15. AMBIEN [Concomitant]
  16. ZYBAN [Concomitant]
  17. OXYCONTIN [Concomitant]
     Route: 048
  18. AVINZA [Concomitant]
  19. AVINZA [Concomitant]
     Indication: BREAKTHROUGH PAIN

REACTIONS (25)
  - ACCIDENTAL OVERDOSE [None]
  - ASPIRATION [None]
  - BLOOD URINE PRESENT [None]
  - BURN INFECTION [None]
  - CARDIO-RESPIRATORY ARREST [None]
  - DEPRESSION [None]
  - DIZZINESS [None]
  - DRUG TOXICITY [None]
  - FALL [None]
  - HAEMATEMESIS [None]
  - HEADACHE [None]
  - INSOMNIA [None]
  - MUSCLE SPASMS [None]
  - NARCOTIC INTOXICATION [None]
  - PAIN [None]
  - PETECHIAE [None]
  - POSTOPERATIVE WOUND INFECTION [None]
  - PRECANCEROUS CELLS PRESENT [None]
  - RASH [None]
  - SINUS HEADACHE [None]
  - SUICIDE ATTEMPT [None]
  - THERAPEUTIC RESPONSE DECREASED [None]
  - ULNAR NERVE INJURY [None]
  - UNRESPONSIVE TO STIMULI [None]
  - UPPER RESPIRATORY TRACT INFECTION [None]
